FAERS Safety Report 20363852 (Version 2)
Quarter: 2022Q1

REPORT INFORMATION
  Report Type: Report from Study
  Country: BR (occurrence: BR)
  Receive Date: 20220121
  Receipt Date: 20220127
  Transmission Date: 20220423
  Serious: Yes (Other)
  Sender: FDA-Public Use
  Company Number: BR-UCBSA-2021051781

PATIENT
  Age: 40 Year
  Sex: Female
  Weight: 84 kg

DRUGS (7)
  1. CERTOLIZUMAB PEGOL [Suspect]
     Active Substance: CERTOLIZUMAB PEGOL
     Indication: Rheumatoid arthritis
     Dosage: 200 MILLIGRAM, EV 15 DAYS
     Route: 058
     Dates: start: 201807, end: 20211015
  2. CERTOLIZUMAB PEGOL [Suspect]
     Active Substance: CERTOLIZUMAB PEGOL
     Dosage: 200 MILLIGRAM, EV 15 DAYS
     Route: 058
     Dates: end: 202112
  3. ZART [Concomitant]
     Indication: Blood pressure abnormal
     Dosage: 50 MILLIGRAM, UNK
     Route: 048
     Dates: start: 202104
  4. NIMESULIDE [Concomitant]
     Active Substance: NIMESULIDE
     Indication: Inflammation
     Dosage: 100 MILLIGRAM, UNK
     Route: 065
  5. ZART H [Concomitant]
     Indication: Hypertension
     Dosage: 1 DOSAGE FORM, EV 2 WEEKS(QOW)
     Route: 048
  6. TRAMADOL [Concomitant]
     Active Substance: TRAMADOL
     Indication: Pain
  7. DIPYRONE [Concomitant]
     Active Substance: DIPYRONE
     Indication: Pyrexia
     Dosage: 1 MILLIGRAM, UNK

REACTIONS (4)
  - Rheumatoid arthritis [Not Recovered/Not Resolved]
  - Osteomyelitis [Not Recovered/Not Resolved]
  - Product availability issue [Unknown]
  - Therapy interrupted [Unknown]

NARRATIVE: CASE EVENT DATE: 20210101
